FAERS Safety Report 9993410 (Version 1)
Quarter: 2014Q1

REPORT INFORMATION
  Report Type: Report from Study
  Country: CA (occurrence: CA)
  Receive Date: 20140310
  Receipt Date: 20140310
  Transmission Date: 20141002
  Serious: Yes (Other)
  Sender: FDA-Public Use
  Company Number: CA-ABBVIE-14P-028-1208593-00

PATIENT
  Sex: Female
  Weight: 56.75 kg

DRUGS (2)
  1. HUMIRA [Suspect]
     Indication: ANKYLOSING SPONDYLITIS
     Route: 058
     Dates: start: 20121012, end: 201306
  2. INDOMETHACIN [Concomitant]
     Indication: ARTHRITIS

REACTIONS (4)
  - Arthropathy [Unknown]
  - Wound [Not Recovered/Not Resolved]
  - Blood pressure decreased [Not Recovered/Not Resolved]
  - Oral herpes [Not Recovered/Not Resolved]
